FAERS Safety Report 10387183 (Version 1)
Quarter: 2014Q3

REPORT INFORMATION
  Report Type: Spontaneous
  Country: US (occurrence: None)
  Receive Date: 20140814
  Receipt Date: 20140814
  Transmission Date: 20150326
  Serious: No
  Sender: FDA-Public Use
  Company Number: None

PATIENT
  Age: 85 Year
  Sex: Female
  Weight: 53.52 kg

DRUGS (9)
  1. VITAMIN B12 [Concomitant]
     Active Substance: CYANOCOBALAMIN
  2. ALPRAZOLAM. [Concomitant]
     Active Substance: ALPRAZOLAM
  3. PANTOPRAZOLE [Concomitant]
     Active Substance: PANTOPRAZOLE SODIUM
  4. GENERIC FOR LEVAQUIN RX: 6624039-MAR.19TH2014 LEVOFLOXACIN. 750 MG. TAB (AURO) PTY:3 TAB TAB MCNE REF:14078393804093999 NDC 65862-0538-20 MSB/GK MPD-RX SOLUTIONS TAB MCNE AURBINDO [Suspect]
     Active Substance: LEVOFLOXACIN
     Indication: TENDON RUPTURE
     Dosage: 750-MG TAB-3?3 TABS?1 EVERY OTHER DAY?MOUTH
     Route: 048
  5. ACETAMIN/COD [Concomitant]
  6. VIT.D [Concomitant]
  7. ACTONEL [Concomitant]
     Active Substance: RISEDRONATE SODIUM
  8. OXYBUTYNIN [Concomitant]
     Active Substance: OXYBUTYNIN
  9. ASPIRIN. [Concomitant]
     Active Substance: ASPIRIN

REACTIONS (1)
  - Tendon rupture [None]

NARRATIVE: CASE EVENT DATE: 20140319
